FAERS Safety Report 19311065 (Version 2)
Quarter: 2024Q1

REPORT INFORMATION
  Report Type: Spontaneous
  Country: FR (occurrence: FR)
  Receive Date: 20210526
  Receipt Date: 20240105
  Transmission Date: 20240410
  Serious: Yes (Hospitalization, Other)
  Sender: FDA-Public Use
  Company Number: FR-AUROBINDO-AUR-APL-2021-020999

PATIENT
  Age: 67 Year
  Sex: Male

DRUGS (2)
  1. TENOFOVIR DISOPROXIL [Suspect]
     Active Substance: TENOFOVIR DISOPROXIL
     Indication: Hepatitis B reactivation
     Dosage: 245 MILLIGRAM, ONCE A DAY
     Route: 065
  2. DURVALUMAB [Concomitant]
     Active Substance: DURVALUMAB
     Indication: Lung cancer metastatic
     Dosage: 900 MILLIGRAM
     Route: 042

REACTIONS (1)
  - Drug ineffective [Unknown]
